FAERS Safety Report 7352682-2 (Version None)
Quarter: 2011Q1

REPORT INFORMATION
  Report Type: 
  Country: None (occurrence: None)
  Receive Date: 20110315
  Receipt Date: 20110216
  Transmission Date: 20110831
  Serious: No
  Sender: FDA-Public Use
  Company Number: US-B.I. PHARMACEUTICALS,INC./RIDGEFIELD-2011-BP-05865BP

PATIENT
  Sex: Female

DRUGS (5)
  1. DIGOXIN [Concomitant]
     Indication: ATRIAL FIBRILLATION
  2. METOPROLOL [Concomitant]
     Indication: ATRIAL FIBRILLATION
  3. PRADAXA [Suspect]
     Indication: ATRIAL FIBRILLATION
     Dosage: 300 MG
     Route: 048
     Dates: start: 20110101
  4. HYDROCHLOROTHIAZIDE [Concomitant]
     Indication: OEDEMA PERIPHERAL
  5. LISINOPRIL [Concomitant]
     Indication: ATRIAL FIBRILLATION

REACTIONS (2)
  - CHEST PAIN [None]
  - SWELLING FACE [None]
